FAERS Safety Report 9333002 (Version 1)
Quarter: 2013Q2

REPORT INFORMATION
  Report Type: Spontaneous
  Country: GB (occurrence: GB)
  Receive Date: 20130606
  Receipt Date: 20130606
  Transmission Date: 20140414
  Serious: Yes (Life-Threatening, Hospitalization, Other)
  Sender: FDA-Public Use
  Company Number: GB-PFIZER INC-2013165540

PATIENT
  Age: 64 Year
  Sex: Male

DRUGS (3)
  1. SULFASALAZINE [Suspect]
     Indication: ARTHROPATHY
     Dosage: 1 GRAM/ 2X/DAY
     Route: 048
  2. PREDNISOLONE [Concomitant]
     Indication: ARTHROPATHY
     Dosage: 7.5 MG, 1X/DAY
     Route: 048
  3. SIMVASTATIN [Concomitant]
     Dosage: AT NIGHT
     Route: 048

REACTIONS (5)
  - Pyrexia [Unknown]
  - Myalgia [Unknown]
  - Neutropenia [Recovered/Resolved]
  - Cellulitis [Unknown]
  - Malaise [Unknown]
